FAERS Safety Report 13614833 (Version 1)
Quarter: 2017Q2

REPORT INFORMATION
  Report Type: Spontaneous
  Country: US (occurrence: US)
  Receive Date: 20170606
  Receipt Date: 20170606
  Transmission Date: 20170830
  Serious: Yes (Other)
  Sender: FDA-Public Use
  Company Number: US-ROCHE-1944508

PATIENT
  Sex: Male

DRUGS (21)
  1. CARVEDILOL. [Concomitant]
     Active Substance: CARVEDILOL
     Route: 065
  2. LISINOPRIL. [Concomitant]
     Active Substance: LISINOPRIL
  3. SYMBICORT [Concomitant]
     Active Substance: BUDESONIDE\FORMOTEROL FUMARATE DIHYDRATE
  4. DONEPEZIL. [Concomitant]
     Active Substance: DONEPEZIL
  5. LORATADINE. [Concomitant]
     Active Substance: LORATADINE
  6. VITAMIN B12 [Concomitant]
     Active Substance: CYANOCOBALAMIN
  7. FUROSEMIDE. [Concomitant]
     Active Substance: FUROSEMIDE
  8. TAMSULOSIN [Concomitant]
     Active Substance: TAMSULOSIN
  9. MIRTAZAPINE. [Concomitant]
     Active Substance: MIRTAZAPINE
  10. GOODSENSE ARTIFICIAL TEARS [Concomitant]
     Active Substance: POLYVINYL ALCOHOL\POVIDONE
  11. ESBRIET [Suspect]
     Active Substance: PIRFENIDONE
     Indication: PRODUCT USED FOR UNKNOWN INDICATION
     Route: 048
     Dates: start: 20170420
  12. SULFAMETHOXAZOLE [Concomitant]
     Active Substance: SULFAMETHOXAZOLE
  13. IPRATROPIUM [Concomitant]
     Active Substance: IPRATROPIUM
  14. MECLIZINE [Concomitant]
     Active Substance: MECLIZINE HYDROCHLORIDE
  15. LORAZEPAM. [Concomitant]
     Active Substance: LORAZEPAM
  16. PREDNISONE. [Concomitant]
     Active Substance: PREDNISONE
  17. FINASTERIDE. [Concomitant]
     Active Substance: FINASTERIDE
  18. DICLOFENAC [Concomitant]
     Active Substance: DICLOFENAC
  19. SIMVASTATIN. [Concomitant]
     Active Substance: SIMVASTATIN
  20. OXYBUTYNIN [Concomitant]
     Active Substance: OXYBUTYNIN
  21. PROAIR HFA [Concomitant]
     Active Substance: ALBUTEROL SULFATE

REACTIONS (2)
  - Dyspnoea [Unknown]
  - Anxiety [Unknown]
